FAERS Safety Report 23649137 (Version 1)
Quarter: 2024Q1

REPORT INFORMATION
  Report Type: Spontaneous
  Country: US (occurrence: US)
  Receive Date: 20240319
  Receipt Date: 20240319
  Transmission Date: 20240410
  Serious: No
  Sender: FDA-Public Use
  Company Number: US-MARINUS PHARMACEUTICALS, INC.-MAR2024000039

PATIENT

DRUGS (1)
  1. ZTALMY [Suspect]
     Active Substance: GANAXOLONE
     Indication: Seizure
     Dosage: ^HEAVY DOSE^ THEN 12 ML EVERY 8 HOURS WEANED TO 8 ML
     Route: 065
     Dates: start: 202312

REACTIONS (1)
  - Confusional state [Unknown]
